FAERS Safety Report 5852209-8 (Version None)
Quarter: 2008Q3

REPORT INFORMATION
  Report Type: 
  Country: None (occurrence: None)
  Receive Date: 20080819
  Receipt Date: 20080804
  Transmission Date: 20090109
  Serious: Yes (Death, Hospitalization)
  Sender: FDA-Public Use
  Company Number: KADN20080324

PATIENT
  Age: 50 Year
  Sex: Female

DRUGS (9)
  1. MORPHINE [Suspect]
     Dosage: ORAL
     Route: 048
     Dates: end: 20060101
  2. CLONAZEPAM [Suspect]
     Dosage: ORAL
     Route: 048
     Dates: end: 20060101
  3. ROSIGLITAZONE [Concomitant]
  4. THYROID PREPERATION [Concomitant]
  5. FUROSEMIDE [Concomitant]
  6. QUINAPRIL [Concomitant]
  7. PRAVASTATIN [Concomitant]
  8. PREGABALIN [Concomitant]
  9. BACLOFEN [Concomitant]

REACTIONS (11)
  - BLOOD PRESSURE INCREASED [None]
  - BODY TEMPERATURE INCREASED [None]
  - BRONCHOPNEUMONIA [None]
  - COMA [None]
  - DRUG INEFFECTIVE [None]
  - HEART RATE INCREASED [None]
  - HYPOXIC ENCEPHALOPATHY [None]
  - MIOSIS [None]
  - PULMONARY OEDEMA [None]
  - RESPIRATORY ARREST [None]
  - RESPIRATORY DEPRESSION [None]
